FAERS Safety Report 12626470 (Version 1)
Quarter: 2016Q3

REPORT INFORMATION
  Report Type: Report from Study
  Country: US (occurrence: US)
  Receive Date: 20160805
  Receipt Date: 20160805
  Transmission Date: 20161109
  Serious: Yes (Other)
  Sender: FDA-Public Use
  Company Number: US-ALEXION PHARMACEUTICALS INC.-A201605540

PATIENT
  Sex: Female

DRUGS (1)
  1. STRENSIQ [Suspect]
     Active Substance: ASFOTASE ALFA
     Indication: PRODUCT USED FOR UNKNOWN INDICATION
     Dosage: UNK
     Route: 058

REACTIONS (6)
  - Soft tissue disorder [Recovering/Resolving]
  - Musculoskeletal disorder [Recovering/Resolving]
  - Pain [Recovering/Resolving]
  - Neuropathy peripheral [Recovering/Resolving]
  - Abasia [Recovering/Resolving]
  - Vitamin B6 decreased [Recovering/Resolving]
